FAERS Safety Report 4633859-3 (Version None)
Quarter: 2005Q1

REPORT INFORMATION
  Report Type: 
  Country: None (occurrence: None)
  Receive Date: 20050325
  Receipt Date: 20041209
  Transmission Date: 20050727
  Serious: No
  Sender: FDA-Public Use
  Company Number: USA041285806

PATIENT
  Age: 72 Year
  Sex: Female

DRUGS (7)
  1. FORTEO [Suspect]
     Indication: OSTEOPOROSIS
     Dosage: 20 UG
     Dates: start: 20041206
  2. PREDNISONE [Concomitant]
  3. NEPHROCAPS [Concomitant]
  4. LIPITOR (ATORVASTATIN CA;CIUM) [Concomitant]
  5. NEXIUM [Concomitant]
  6. ASPIRIN [Concomitant]
  7. TYLENOL [Concomitant]

REACTIONS (2)
  - FEELING ABNORMAL [None]
  - MUSCLE SPASMS [None]
